FAERS Safety Report 7967856-7 (Version None)
Quarter: 2011Q4

REPORT INFORMATION
  Report Type: 
  Country: None (occurrence: None)
  Receive Date: 20111209
  Receipt Date: 20111129
  Transmission Date: 20120403
  Serious: Yes (Hospitalization)
  Sender: FDA-Public Use
  Company Number: US-BAYER-2011-031881

PATIENT
  Age: 30 Year
  Sex: Female
  Weight: 49.887 kg

DRUGS (5)
  1. DILAUDID [Concomitant]
  2. ZOFRAN [Concomitant]
  3. METRONIDAZOLE [Concomitant]
  4. YAZ [Suspect]
     Indication: CONTRACEPTION
     Dosage: UNK
     Dates: start: 20080101, end: 20090801
  5. LEVOFLOXACIN [Concomitant]

REACTIONS (2)
  - THROMBOSIS [None]
  - PORTAL VEIN THROMBOSIS [None]
